FAERS Safety Report 18922666 (Version 1)
Quarter: 2021Q1

REPORT INFORMATION
  Report Type: Spontaneous
  Country: NL (occurrence: NL)
  Receive Date: 20210222
  Receipt Date: 20210222
  Transmission Date: 20210420
  Serious: Yes (Other)
  Sender: FDA-Public Use
  Company Number: NL-MYLANLABS-2021M1010394

PATIENT
  Age: 60 Year
  Sex: Male
  Weight: 130 kg

DRUGS (2)
  1. FEXOFENADINE [Suspect]
     Active Substance: FEXOFENADINE HYDROCHLORIDE
     Indication: SEASONAL ALLERGY
     Dosage: 1 DOSAGE FORM, QD
     Dates: start: 20130501
  2. SOTALOL                            /00371502/ [Concomitant]
     Active Substance: SOTALOL HYDROCHLORIDE
     Dosage: 2 TIMES A DAY 1 PIECE (S)
     Dates: start: 20120101

REACTIONS (1)
  - Atrial fibrillation [Recovered/Resolved]

NARRATIVE: CASE EVENT DATE: 20130505
